FAERS Safety Report 13563683 (Version 1)
Quarter: 2017Q2

REPORT INFORMATION
  Report Type: Spontaneous
  Country: GB (occurrence: GB)
  Receive Date: 20170519
  Receipt Date: 20170519
  Transmission Date: 20170830
  Serious: Yes (Other)
  Sender: FDA-Public Use
  Company Number: GB-TEVA-768541ROM

PATIENT
  Age: 63 Year
  Sex: Female

DRUGS (1)
  1. SUMATRIPTAN. [Suspect]
     Active Substance: SUMATRIPTAN
     Indication: MIGRAINE
     Dosage: APPROXIMATELY 50 MG THREE TIMES A YEAR FOR THE PAST 3 YEARS
     Route: 048

REACTIONS (1)
  - IIIrd nerve paresis [Recovered/Resolved]
